FAERS Safety Report 16903492 (Version 10)
Quarter: 2022Q1

REPORT INFORMATION
  Report Type: Spontaneous
  Country: US (occurrence: US)
  Receive Date: 20191010
  Receipt Date: 20220104
  Transmission Date: 20220423
  Serious: Yes (Other)
  Sender: FDA-Public Use
  Company Number: US-PFIZER INC-2019434189

PATIENT
  Age: 62 Year
  Sex: Female
  Weight: 62.6 kg

DRUGS (8)
  1. CYTOMEL [Suspect]
     Active Substance: LIOTHYRONINE SODIUM
     Indication: Tri-iodothyronine decreased
     Dosage: 200 UG, DAILY
  2. CYTOMEL [Suspect]
     Active Substance: LIOTHYRONINE SODIUM
     Indication: Hypothyroidism
     Dosage: 50 UG, 4X/DAY
     Route: 048
     Dates: start: 201806
  3. CYTOMEL [Suspect]
     Active Substance: LIOTHYRONINE SODIUM
     Indication: Autoimmune thyroiditis
     Dosage: 50 UG, 4X/DAY
     Route: 048
     Dates: start: 2020
  4. CYTOMEL [Suspect]
     Active Substance: LIOTHYRONINE SODIUM
     Dosage: 50 UG, 3X/DAY(THREE TABLETS A DAY)
  5. CYTOMEL [Suspect]
     Active Substance: LIOTHYRONINE SODIUM
     Dosage: 15 UG, 3X/DAY(THREE TIMES A DAY)
  6. SYNTHROID [Concomitant]
     Active Substance: LEVOTHYROXINE SODIUM
     Indication: Hypothyroidism
     Dosage: 0.112 UG, 1X/DAY (0.112 MCG, ONCE DAILY BY MOUTH. FORMULATION: TABLET)
  7. SYNTHROID [Concomitant]
     Active Substance: LEVOTHYROXINE SODIUM
     Indication: Thyroxine
     Dosage: 112 UG (SHE WAS STARTED ON SYNTHROID YEARS AGO AT 112 MCG)
  8. SYNTHROID [Concomitant]
     Active Substance: LEVOTHYROXINE SODIUM
     Dosage: 137 UG, 1X/DAY
     Route: 048

REACTIONS (26)
  - Autoimmune thyroiditis [Unknown]
  - Condition aggravated [Unknown]
  - Abdominal distension [Not Recovered/Not Resolved]
  - Peripheral swelling [Not Recovered/Not Resolved]
  - Swelling face [Not Recovered/Not Resolved]
  - Dysuria [Not Recovered/Not Resolved]
  - Dysphonia [Not Recovered/Not Resolved]
  - Dyspnoea [Recovered/Resolved]
  - Swelling [Not Recovered/Not Resolved]
  - Nasopharyngitis [Unknown]
  - Alopecia [Unknown]
  - Weight increased [Unknown]
  - Drug hypersensitivity [Unknown]
  - Headache [Unknown]
  - Feeling hot [Unknown]
  - Hyperhidrosis [Unknown]
  - Illness [Unknown]
  - Erythema [Unknown]
  - Fatigue [Unknown]
  - Myalgia [Unknown]
  - Flushing [Unknown]
  - Hot flush [Unknown]
  - Off label use [Unknown]
  - Product appearance confusion [Unknown]
  - Product dispensing error [Unknown]
  - Suspected counterfeit product [Unknown]

NARRATIVE: CASE EVENT DATE: 20180601
